FAERS Safety Report 9632219 (Version 1)
Quarter: 2013Q4

REPORT INFORMATION
  Report Type: Spontaneous
  Country: BR (occurrence: None)
  Receive Date: 20131016
  Receipt Date: 20131016
  Transmission Date: 20140711
  Serious: Yes (Other)
  Sender: FDA-Public Use
  Company Number: SYM-2013-11516

PATIENT
  Age: 34 Year
  Sex: Male

DRUGS (8)
  1. WELLBUTRIN XL [Suspect]
     Indication: DEPRESSION
     Route: 048
     Dates: start: 20130918
  2. BIOVIR (ZIDOVUDINE W/LAMIVUDINE) [Concomitant]
  3. LEXAPRO (ESCITALOPRAM OXALATE) [Concomitant]
  4. MIRTAZAPINE [Concomitant]
  5. RIVOTRIL (CLONAZEPAM) [Concomitant]
  6. DEPAKOTE ER (VALPROATE SEMISODIUM) [Concomitant]
  7. RITONAVIR [Concomitant]
  8. ATAZANAVIR [Concomitant]

REACTIONS (5)
  - Suicidal ideation [None]
  - Anxiety [None]
  - Obsessive-compulsive disorder [None]
  - Aggression [None]
  - Depressed mood [None]
